FAERS Safety Report 18217356 (Version 1)
Quarter: 2020Q3

REPORT INFORMATION
  Report Type: Spontaneous
  Country: US (occurrence: US)
  Receive Date: 20200831
  Receipt Date: 20200831
  Transmission Date: 20201103
  Serious: Yes (Life-Threatening, Hospitalization)
  Sender: FDA-Public Use
  Company Number: None

PATIENT
  Age: 66 Year
  Sex: Male
  Weight: 138 kg

DRUGS (2)
  1. LORAZEPAM (LORAZEPAM 0.5MG TAB) [Suspect]
     Active Substance: LORAZEPAM
     Indication: ANXIETY
     Route: 048
     Dates: start: 20030127
  2. LORAZEPAM (LORAZEPAM 0.5MG TAB) [Suspect]
     Active Substance: LORAZEPAM
     Route: 048

REACTIONS (5)
  - Respiratory failure [None]
  - Mental status changes [None]
  - Hypercapnia [None]
  - Respiratory arrest [None]
  - Overdose [None]

NARRATIVE: CASE EVENT DATE: 20200524
